FAERS Safety Report 20350437 (Version 3)
Quarter: 2022Q1

REPORT INFORMATION
  Report Type: Report from Study
  Country: JP (occurrence: JP)
  Receive Date: 20220119
  Receipt Date: 20220223
  Transmission Date: 20220424
  Serious: Yes (Hospitalization)
  Sender: FDA-Public Use
  Company Number: JP-Eisai-202110633_PENT_C_1

PATIENT
  Age: 50 Year
  Sex: Male
  Weight: 73 kg

DRUGS (10)
  1. E-7386 [Suspect]
     Active Substance: E-7386
     Indication: Cholangiocarcinoma
     Route: 048
     Dates: start: 20211202, end: 20211213
  2. E-7386 [Suspect]
     Active Substance: E-7386
     Route: 048
     Dates: start: 20211214, end: 20211214
  3. E-7386 [Suspect]
     Active Substance: E-7386
     Route: 048
     Dates: start: 20211217, end: 20211217
  4. E-7386 [Suspect]
     Active Substance: E-7386
     Route: 048
     Dates: start: 20211221, end: 20220103
  5. E-7386 [Suspect]
     Active Substance: E-7386
     Route: 048
     Dates: start: 20220104, end: 20220104
  6. LENVATINIB [Suspect]
     Active Substance: LENVATINIB
     Indication: Cholangiocarcinoma
     Route: 048
     Dates: start: 20211207, end: 20211214
  7. LENVATINIB [Suspect]
     Active Substance: LENVATINIB
     Route: 048
     Dates: start: 20211217, end: 20211217
  8. LENVATINIB [Suspect]
     Active Substance: LENVATINIB
     Route: 048
     Dates: start: 20211222, end: 20220104
  9. KETOPROFEN [Concomitant]
     Active Substance: KETOPROFEN
     Indication: Myalgia
     Route: 062
     Dates: start: 20211102, end: 20211214
  10. CALONAL [Concomitant]
     Active Substance: ACETAMINOPHEN
     Indication: Pyrexia
     Route: 048
     Dates: start: 20211215, end: 20220106

REACTIONS (1)
  - Liver disorder [Recovering/Resolving]

NARRATIVE: CASE EVENT DATE: 20220107
